FAERS Safety Report 9743437 (Version 1)
Quarter: 2013Q4

REPORT INFORMATION
  Report Type: Spontaneous
  Country: US (occurrence: US)
  Receive Date: 20131210
  Receipt Date: 20131210
  Transmission Date: 20140711
  Serious: Yes (Other)
  Sender: FDA-Public Use
  Company Number: US-TEVA-379999USA

PATIENT
  Age: 22 Year
  Sex: Female
  Weight: 73.55 kg

DRUGS (4)
  1. PARAGARD 380A [Suspect]
     Indication: CONTRACEPTION
     Route: 015
     Dates: start: 20121012, end: 20130107
  2. PROZAC [Concomitant]
     Indication: DEPRESSION
  3. IRON [Concomitant]
     Indication: MINERAL SUPPLEMENTATION
  4. HERBAL SUPPLEMENTS [Concomitant]
     Indication: PHYTOTHERAPY

REACTIONS (5)
  - Vaginal haemorrhage [Recovered/Resolved]
  - Vaginal odour [Unknown]
  - Pelvic pain [Unknown]
  - Device expulsion [Recovered/Resolved]
  - Abdominal tenderness [Unknown]
